FAERS Safety Report 19318746 (Version 1)
Quarter: 2021Q2

REPORT INFORMATION
  Report Type: Report from Study
  Country: CA (occurrence: CA)
  Receive Date: 20210527
  Receipt Date: 20210527
  Transmission Date: 20210717
  Serious: Yes (Other)
  Sender: FDA-Public Use
  Company Number: CA-PFIZER INC-2021575317

PATIENT
  Age: 47 Year
  Sex: Female

DRUGS (11)
  1. CELEBREX [Suspect]
     Active Substance: CELECOXIB
     Route: 065
  2. ERELZI [Suspect]
     Active Substance: ETANERCEPT-SZZS
     Indication: PSORIATIC ARTHROPATHY
     Dosage: 50 MG, WEEKLY
     Route: 058
  3. VOLTAREN [DICLOFENAC] [Suspect]
     Active Substance: DICLOFENAC SODIUM
     Dosage: UNK
     Route: 048
  4. DICLOFENAC [Suspect]
     Active Substance: DICLOFENAC
     Route: 048
  5. VYVANSE [Concomitant]
     Active Substance: LISDEXAMFETAMINE DIMESYLATE
     Dosage: 1 DF, 1X/DAY
     Route: 048
  6. ESOMEPRAZOLE MAGNESIUM TRIHYDRATE/NAPROXEN [Concomitant]
     Active Substance: ESOMEPRAZOLE MAGNESIUM\NAPROXEN
     Dosage: UNK, 1X/DAY
     Route: 065
  7. ERELZI [Suspect]
     Active Substance: ETANERCEPT-SZZS
     Indication: ANKYLOSING SPONDYLITIS
     Dosage: 50 MG, WEEKLY
     Route: 058
  8. VOLTAREN [DICLOFENAC] [Suspect]
     Active Substance: DICLOFENAC SODIUM
     Route: 061
  9. NAPROXEN. [Concomitant]
     Active Substance: NAPROXEN
     Route: 065
  10. CHLOROQUINE. [Concomitant]
     Active Substance: CHLOROQUINE
     Route: 048
  11. ROBAXIN [Concomitant]
     Active Substance: METHOCARBAMOL
     Route: 065

REACTIONS (20)
  - Angioedema [Recovered/Resolved]
  - Dizziness [Recovered/Resolved]
  - General physical health deterioration [Recovered/Resolved]
  - Pharyngeal swelling [Recovered/Resolved]
  - Rash [Recovered/Resolved]
  - Wrong technique in product usage process [Recovered/Resolved]
  - Asthenia [Recovered/Resolved]
  - Injection site pain [Recovered/Resolved]
  - Malaise [Recovered/Resolved]
  - Ear pain [Recovered/Resolved]
  - Exposure via skin contact [Recovered/Resolved]
  - Incorrect route of product administration [Recovered/Resolved]
  - Abdominal pain upper [Recovered/Resolved]
  - Drug hypersensitivity [Recovered/Resolved]
  - Synovial cyst [Recovered/Resolved]
  - Dyspnoea [Recovered/Resolved]
  - Gastric ulcer [Recovered/Resolved]
  - Attention deficit hyperactivity disorder [Recovered/Resolved]
  - Abdominal discomfort [Recovered/Resolved]
  - Swollen tongue [Recovered/Resolved]
